FAERS Safety Report 18763064 (Version 1)
Quarter: 2021Q1

REPORT INFORMATION
  Report Type: Spontaneous
  Country: CN (occurrence: CN)
  Receive Date: 20210120
  Receipt Date: 20210120
  Transmission Date: 20210419
  Serious: Yes (Other)
  Sender: FDA-Public Use
  Company Number: CN-PFIZER INC-2021013514

PATIENT
  Age: 28 Year
  Sex: Female

DRUGS (7)
  1. METHYLPREDNISOLONE. [Suspect]
     Active Substance: METHYLPREDNISOLONE
     Indication: NEUROPSYCHIATRIC LUPUS
  2. PREDNISOLONE. [Suspect]
     Active Substance: PREDNISOLONE
     Indication: NEUROPSYCHIATRIC LUPUS
  3. PREDNISOLONE. [Suspect]
     Active Substance: PREDNISOLONE
     Indication: SYSTEMIC LUPUS ERYTHEMATOSUS
     Dosage: 10 MG, DAILY
  4. CICLOSPORIN [Suspect]
     Active Substance: CYCLOSPORINE
     Indication: DOUBLE STRANDED DNA ANTIBODY POSITIVE
     Dosage: 100 MG, DAILY
  5. ENOXAPARIN SODIUM. [Suspect]
     Active Substance: ENOXAPARIN SODIUM
     Dosage: 4000 IU, DAILY
     Route: 058
  6. ASPIRIN [ACETYLSALICYLIC ACID] [Suspect]
     Active Substance: ASPIRIN
     Indication: FIBRIN D DIMER INCREASED
     Dosage: 100 MG, DAILY
  7. METHYLPREDNISOLONE. [Suspect]
     Active Substance: METHYLPREDNISOLONE
     Indication: SYSTEMIC LUPUS ERYTHEMATOSUS
     Dosage: UNK (HIGHEST DOSE OF GLUCOCORTICOIDS }0.5 MG/KG, DAILY)

REACTIONS (2)
  - Pulmonary embolism [Unknown]
  - Maternal exposure during pregnancy [Unknown]
